FAERS Safety Report 4850692-8 (Version None)
Quarter: 2005Q4

REPORT INFORMATION
  Report Type: 
  Country: None (occurrence: None)
  Receive Date: 20051212
  Receipt Date: 20051201
  Transmission Date: 20060501
  Serious: Yes (Death)
  Sender: FDA-Public Use
  Company Number: US-JNJFOC-20051200461

PATIENT
  Age: 77 Year
  Sex: Female

DRUGS (3)
  1. REMICADE [Suspect]
     Indication: RHEUMATOID ARTHRITIS
     Route: 042
  2. METHOTREXATE [Concomitant]
  3. COX 2 INHIBITOR [Concomitant]

REACTIONS (5)
  - BLINDNESS UNILATERAL [None]
  - DEATH [None]
  - HERPES OPHTHALMIC [None]
  - IMPAIRED HEALING [None]
  - KERATORHEXIS [None]
